FAERS Safety Report 10531767 (Version 3)
Quarter: 2015Q1

REPORT INFORMATION
  Report Type: Spontaneous
  Country: US (occurrence: US)
  Receive Date: 20141021
  Receipt Date: 20150311
  Transmission Date: 20150720
  Serious: Yes (Hospitalization, Other)
  Sender: FDA-Public Use
  Company Number: US-PFIZER INC-2014275663

PATIENT
  Age: 71 Year
  Sex: Female

DRUGS (21)
  1. DULCOLAX [Concomitant]
     Active Substance: BISACODYL OR DOCUSATE SODIUM
     Dosage: 10 MG RECTAL SUPPOSITORY AT 1 SUPPOSITORY RECTAL ONCE DAILY AS NEEDED
     Route: 054
     Dates: start: 20150205
  2. VITAMIN D2 [Concomitant]
     Active Substance: ERGOCALCIFEROL
     Dosage: 1 TABLET
     Route: 048
     Dates: start: 20150128
  3. PERCOCET [Concomitant]
     Active Substance: ACETAMINOPHEN\OXYCODONE HYDROCHLORIDE
     Dosage: 5 MG-325 MG TABLET,  4 TABLETS ORAL EVERY 4-6 HOURS AS NEEDEDTABLET)
     Route: 048
     Dates: start: 20150205
  4. TYLENOL [Concomitant]
     Active Substance: ACETAMINOPHEN
     Dosage: 325 MG TABLET AT 2 TABLETS ORAL EVERY 3 HOURS AS NEEDED
     Route: 048
     Dates: start: 20150205
  5. VENLAFAXINE ER [Concomitant]
     Active Substance: VENLAFAXINE HYDROCHLORIDE
     Dosage: 1 DF, 2X/DAY
     Route: 048
     Dates: start: 20140916
  6. ROPINIROLE. [Concomitant]
     Active Substance: ROPINIROLE
     Dosage: 1 DF, 2X/DAY
     Route: 048
     Dates: start: 20140916
  7. BACTROBAN 2% [Concomitant]
     Dosage: 1 DF, 1X/DAY (1 APPLICATION TOPICAL TWICE DAILY)
     Route: 061
     Dates: start: 20150205
  8. HYDROXYZINE HYDROCHLORIDE. [Concomitant]
     Active Substance: HYDROXYZINE HYDROCHLORIDE
     Dosage: 1 TABLET ONCE A DAY AT BEDTIME
     Route: 048
     Dates: start: 20150128
  9. MIRALAX [Concomitant]
     Active Substance: POLYETHYLENE GLYCOL 3350
     Dosage: 17 GRAM ORAL POWDER PACKET AT 1 POWDER IN PACKET ORAL ONCE A DAY
     Route: 048
     Dates: start: 20150205
  10. VALIUM [Concomitant]
     Active Substance: DIAZEPAM
     Dosage: 5 MG TABLET AT 1 TABLET ORAL 4 TIMES DAILY AS NEEDED DAILY AS NEEDED
     Route: 048
     Dates: start: 20150205
  11. NIFEDIPINE ER [Concomitant]
     Active Substance: NIFEDIPINE
     Dosage: 1 TABLET EXTENDED RELEASE ORAL TWICE DAILY
     Route: 048
     Dates: start: 20140916
  12. VITAMIN B12 [Concomitant]
     Active Substance: CYANOCOBALAMIN
     Dosage: 1 TABLET, TWICE DAILY
     Route: 048
     Dates: start: 20150128
  13. DOCUSATE SODIUM. [Concomitant]
     Active Substance: DOCUSATE SODIUM
     Dosage: 25 MG CAPSULE AT 1 CAPSULE TWICE DAILY
     Route: 048
     Dates: start: 20140916
  14. FERROUS SULFATE [Concomitant]
     Active Substance: FERROUS SULFATE\FERROUS SULFATE, DRIED
     Dosage: 1 ORAL 3 TIMES DAILY
     Route: 048
     Dates: start: 20141006
  15. LEVOTHYROXINE [Concomitant]
     Active Substance: LEVOTHYROXINE
     Dosage: 25 MCG TABLET AT 1 TABLET ORAL ONCE A DAY IN THE MORNING
     Route: 048
     Dates: start: 20140916
  16. OMEPRAZOLE. [Concomitant]
     Active Substance: OMEPRAZOLE
     Dosage: 1 TABLET ORAL ONCE A DAY IN THE MORNING
     Route: 048
     Dates: start: 20150128
  17. REVATIO [Suspect]
     Active Substance: SILDENAFIL CITRATE
     Dosage: 20 MG, 3X/DAY
     Route: 048
     Dates: start: 20140916
  18. HIBICLENS 4% [Concomitant]
     Dosage: 1 APPLICATION TOPICAL ONCE DAILY
     Route: 061
     Dates: start: 20150205
  19. METFORMIN [Concomitant]
     Active Substance: METFORMIN HYDROCHLORIDE
     Dosage: 500 MG TABLET AT 1 TABLET ORAL TWICE DAILY
     Route: 048
     Dates: start: 20140916
  20. NOVOLOG [Concomitant]
     Active Substance: INSULIN ASPART
     Dosage: 1 UNIT (INSULIN) SUBCUTANEOUS 4 TIMES DAILY
     Route: 058
     Dates: start: 20150205
  21. FLONASE [Concomitant]
     Active Substance: FLUTICASONE PROPIONATE
     Dosage: 2 SPRAY, SUSPENSION, NASAL ONCE A DAY AT BEDTIME AS NEEDED
     Route: 045
     Dates: start: 20150128

REACTIONS (3)
  - Pneumonia [Recovered/Resolved]
  - Back disorder [Unknown]
  - Gait disturbance [Recovered/Resolved]

NARRATIVE: CASE EVENT DATE: 201409
